FAERS Safety Report 5310222-3 (Version None)
Quarter: 2007Q2

REPORT INFORMATION
  Report Type: 
  Country: None (occurrence: None)
  Receive Date: 20070427
  Receipt Date: 20070418
  Transmission Date: 20071010
  Serious: Yes (Other)
  Sender: FDA-Public Use
  Company Number: JP-ROCHE-487301

PATIENT
  Age: 16 Year
  Sex: Male

DRUGS (2)
  1. TAMIFLU [Suspect]
     Route: 048
     Dates: start: 20070302, end: 20070302
  2. DICLOFENAC SODIUM [Suspect]
     Indication: PYREXIA
     Dosage: REPORTED AS: BEGITA (DICLOFENAC SODIUM).
     Route: 054
     Dates: start: 20070302, end: 20070302

REACTIONS (1)
  - CONVULSION [None]
